FAERS Safety Report 5068733-4 (Version None)
Quarter: 2006Q3

REPORT INFORMATION
  Report Type: 
  Country: None (occurrence: None)
  Receive Date: 20060802
  Receipt Date: 20060307
  Transmission Date: 20061208
  Serious: No
  Sender: FDA-Public Use
  Company Number: US-BRISTOL-MYERS SQUIBB COMPANY-13305958

PATIENT
  Age: 77 Year
  Sex: Female
  Weight: 77 kg

DRUGS (6)
  1. COUMADIN [Suspect]
     Indication: THROMBOSIS
     Dates: start: 20060301
  2. VERAPAMIL [Concomitant]
  3. TRICOR [Concomitant]
  4. COZAAR [Concomitant]
  5. PEPCID [Concomitant]
  6. COLACE [Concomitant]

REACTIONS (1)
  - BURNING SENSATION [None]
